FAERS Safety Report 4384064-X (Version None)
Quarter: 2004Q2

REPORT INFORMATION
  Report Type: 
  Country: None (occurrence: None)
  Receive Date: 20040621
  Receipt Date: 20040615
  Transmission Date: 20050107
  Serious: Yes (Other)
  Sender: FDA-Public Use
  Company Number: CO-SHR-03-006553

PATIENT
  Age: 38 Year
  Sex: Female
  Weight: 62 kg

DRUGS (2)
  1. MIRANOVA (21) (LEVONORGESTREL, ETHINYLESTRADIOL) COATED TABLET [Suspect]
     Indication: ORAL CONTRACEPTION
     Dosage: 1 TAB, 1X/DAY, ORAL
     Route: 048
     Dates: start: 20010401, end: 20021001
  2. AMOXICILLIN [Concomitant]

REACTIONS (4)
  - ABORTION THREATENED [None]
  - FALSE LABOUR [None]
  - PREGNANCY ON ORAL CONTRACEPTIVE [None]
  - URINARY TRACT INFECTION [None]
